FAERS Safety Report 4641574-5 (Version None)
Quarter: 2005Q2

REPORT INFORMATION
  Report Type: 
  Country: None (occurrence: None)
  Receive Date: 20050420
  Receipt Date: 20050330
  Transmission Date: 20051028
  Serious: Yes (Death)
  Sender: FDA-Public Use
  Company Number: USA050394498

PATIENT
  Age: 83 Year
  Sex: Female

DRUGS (12)
  1. ZYPREXA [Suspect]
     Indication: DEMENTIA
     Dates: start: 20040101
  2. NAMENDA (MEMANTINE HYDROCHLORIDE) [Concomitant]
  3. FOSAMAX [Concomitant]
  4. LEXAPRO [Concomitant]
  5. ZOCOR (SIMVASTATIN RATIOPHARM) [Concomitant]
  6. GLYBURIDE [Concomitant]
  7. FUROSEMIDE [Concomitant]
  8. AGGRENOX [Concomitant]
  9. BEXTRA [Concomitant]
  10. NEXIUM [Concomitant]
  11. AVANDIA [Concomitant]
  12. CLONAZEPAM [Concomitant]

REACTIONS (3)
  - DRUG EFFECT DECREASED [None]
  - EATING DISORDER [None]
  - TRANSIENT ISCHAEMIC ATTACK [None]
